FAERS Safety Report 19943763 (Version 3)
Quarter: 2021Q4

REPORT INFORMATION
  Report Type: Spontaneous
  Country: GR (occurrence: GR)
  Receive Date: 20211011
  Receipt Date: 20211122
  Transmission Date: 20220303
  Serious: Yes (Other)
  Sender: FDA-Public Use
  Company Number: GR-ORGANON-O2106GRC001363

PATIENT
  Age: 65 Year
  Sex: Female

DRUGS (7)
  1. METHOTREXATE [Suspect]
     Active Substance: METHOTREXATE
     Indication: Rheumatoid arthritis
     Dosage: UNK
     Dates: start: 202009
  2. AERIUS (DESLORATADINE) [Suspect]
     Active Substance: DESLORATADINE
     Indication: Rhinitis
     Dosage: EVERY DAY ONE TAB.
     Route: 048
  3. AERIUS (DESLORATADINE) [Suspect]
     Active Substance: DESLORATADINE
     Indication: Musculoskeletal stiffness
     Dosage: UNK DOSAGE FORM, QD
     Route: 048
  4. COVID-19 VACCINE NOS [Suspect]
     Active Substance: COVID-19 VACCINE NOS
     Indication: COVID-19 immunisation
     Dosage: 1 DOSAGE FORM, QD,1.0DF ONCE/SINGLE ADMINISTRATION
     Route: 030
     Dates: start: 20210416, end: 20210416
  5. OMEPRAZOLE MAGNESIUM [Suspect]
     Active Substance: OMEPRAZOLE MAGNESIUM
     Indication: Gastrooesophageal reflux disease
     Dosage: UNK
     Route: 048
  6. MEDROL [Suspect]
     Active Substance: METHYLPREDNISOLONE
     Indication: Rheumatoid arthritis
     Dosage: 2 DOSAGE FORM, QD (2 DF, 1X/DAY)
     Dates: start: 202009
  7. MEDROL [Suspect]
     Active Substance: METHYLPREDNISOLONE
     Dosage: 8 DOSAGE FORM, QD (TWO PER DAY AND TWO MORE IN THE NIGHT)

REACTIONS (9)
  - Arthralgia [Recovered/Resolved]
  - Mobility decreased [Unknown]
  - Pain [Recovering/Resolving]
  - Paralysis [Recovering/Resolving]
  - Pyrexia [Unknown]
  - Swelling [Unknown]
  - Toothache [Unknown]
  - Product use issue [Unknown]
  - Product use in unapproved indication [Unknown]

NARRATIVE: CASE EVENT DATE: 20210101
